FAERS Safety Report 6894407-0 (Version None)
Quarter: 2010Q3

REPORT INFORMATION
  Report Type: 
  Country: None (occurrence: None)
  Receive Date: 20100802
  Receipt Date: 20100721
  Transmission Date: 20110219
  Serious: Yes (Hospitalization)
  Sender: FDA-Public Use
  Company Number: FR-ELI_LILLY_AND_COMPANY-FR201007005214

PATIENT
  Sex: Male
  Weight: 52 kg

DRUGS (7)
  1. PEMETREXED [Suspect]
     Indication: NON-SMALL CELL LUNG CANCER
     Dosage: 500 MG/M2, DAY ONE EVERY 21 DAYS
     Route: 042
     Dates: start: 20090923, end: 20091126
  2. CISPLATIN [Suspect]
     Indication: NON-SMALL CELL LUNG CANCER
     Dosage: 75 MG/M2, DAY 1 EVERY 21 DAYS
     Route: 042
     Dates: start: 20090923, end: 20091126
  3. PEMETREXED [Suspect]
     Dosage: DAY1 EVERY 21 DAYS
     Route: 042
     Dates: start: 20091221
  4. FOLIC ACID [Concomitant]
     Indication: PROPHYLAXIS
     Dates: start: 20090917
  5. VITAMIN B-12 [Concomitant]
     Indication: PROPHYLAXIS
     Dosage: UNK, UNK
     Dates: start: 20090917
  6. DEXAMETHASONE [Concomitant]
     Indication: PROPHYLAXIS
     Dates: start: 20090922
  7. TAHOR [Concomitant]
     Indication: HYPERCHOLESTEROLAEMIA
     Dates: start: 20090909

REACTIONS (1)
  - INTESTINAL OBSTRUCTION [None]
